FAERS Safety Report 16057333 (Version 2)
Quarter: 2019Q3

REPORT INFORMATION
  Report Type: Spontaneous
  Country: US (occurrence: US)
  Receive Date: 20190311
  Receipt Date: 20190711
  Transmission Date: 20191004
  Serious: Yes (Other)
  Sender: FDA-Public Use
  Company Number: US-PFIZER INC-2019098149

PATIENT
  Age: 77 Year
  Sex: Female
  Weight: 46.72 kg

DRUGS (2)
  1. SUTENT [Suspect]
     Active Substance: SUNITINIB MALATE
     Indication: GASTROINTESTINAL STROMAL TUMOUR
  2. SUTENT [Suspect]
     Active Substance: SUNITINIB MALATE
     Indication: NEOPLASM MALIGNANT
     Dosage: 37.5 MG, ONCE DAILY
     Route: 048
     Dates: start: 201812

REACTIONS (4)
  - Myalgia [Unknown]
  - Malaise [Unknown]
  - Abdominal pain upper [Unknown]
  - Cardiac disorder [Unknown]
